FAERS Safety Report 22291756 (Version 1)
Quarter: 2023Q2

REPORT INFORMATION
  Report Type: Spontaneous
  Country: US (occurrence: None)
  Receive Date: 20230505
  Receipt Date: 20230505
  Transmission Date: 20230722
  Serious: Yes (Life-Threatening, Hospitalization, Disabling)
  Sender: FDA-Public Use
  Company Number: None

PATIENT
  Age: 27 Year
  Sex: Male
  Weight: 66.6 kg

DRUGS (4)
  1. HERBALS [Suspect]
     Active Substance: HERBALS
     Indication: Anxiety
     Dosage: OTHER QUANTITY : 2 OUNCE(S);?OTHER FREQUENCY : 4-6 TIMES A DAY;?
     Route: 048
  2. HERBALS [Suspect]
     Active Substance: HERBALS
     Indication: Pain
  3. HERBALS\MITRAGYNINE [Suspect]
     Active Substance: HERBALS\MITRAGYNINE
  4. INSULIN NOS [Concomitant]
     Active Substance: INSULIN NOS

REACTIONS (10)
  - Drug dependence [None]
  - Overdose [None]
  - Respiratory distress [None]
  - Pulmonary fibrosis [None]
  - Withdrawal syndrome [None]
  - Chills [None]
  - Pain [None]
  - Hot flush [None]
  - Hyperhidrosis [None]
  - Hallucination [None]

NARRATIVE: CASE EVENT DATE: 20230330
